FAERS Safety Report 5905543-7 (Version None)
Quarter: 2008Q4

REPORT INFORMATION
  Report Type: 
  Country: None (occurrence: None)
  Receive Date: 20081002
  Receipt Date: 20080924
  Transmission Date: 20090506
  Serious: Yes (Hospitalization)
  Sender: FDA-Public Use
  Company Number: US-ABBOTT-08P-163-0478142-00

PATIENT
  Sex: Female
  Weight: 77.18 kg

DRUGS (3)
  1. HUMIRA [Suspect]
     Indication: RHEUMATOID ARTHRITIS
     Route: 058
     Dates: start: 20070604, end: 20080908
  2. SALBUTAMOL [Suspect]
     Indication: PNEUMONIA VIRAL
     Route: 055
     Dates: start: 20080924, end: 20080924
  3. MULTI-VITAMIN [Concomitant]
     Indication: VITAMIN SUPPLEMENTATION
     Route: 048

REACTIONS (16)
  - ATRIAL FIBRILLATION [None]
  - DEHYDRATION [None]
  - FATIGUE [None]
  - FEELING ABNORMAL [None]
  - HEADACHE [None]
  - HYPERHIDROSIS [None]
  - LACERATION [None]
  - LISTLESS [None]
  - MALAISE [None]
  - OROPHARYNGEAL PAIN [None]
  - OXYGEN SATURATION DECREASED [None]
  - PNEUMONIA VIRAL [None]
  - PYREXIA [None]
  - RESTLESSNESS [None]
  - ROAD TRAFFIC ACCIDENT [None]
  - THROAT TIGHTNESS [None]
